FAERS Safety Report 9312122 (Version 2)
Quarter: 2013Q2

REPORT INFORMATION
  Report Type: Spontaneous
  Country: JP (occurrence: JP)
  Receive Date: 20130528
  Receipt Date: 20130604
  Transmission Date: 20140414
  Serious: Yes (Other)
  Sender: FDA-Public Use
  Company Number: JP-BAXTER-2013BAX019052

PATIENT
  Age: 79 Year
  Sex: Female

DRUGS (4)
  1. KIOVIG SOLUTION FOR INFUSION 10% [Suspect]
     Indication: PEMPHIGUS
     Route: 042
  2. KIOVIG SOLUTION FOR INFUSION 10% [Suspect]
     Indication: OFF LABEL USE
  3. PREDNISONE [Suspect]
     Indication: PEMPHIGUS
     Route: 065
  4. METHYLPREDNISOLONE [Suspect]
     Indication: PEMPHIGUS
     Route: 065

REACTIONS (1)
  - Drug ineffective [Not Recovered/Not Resolved]
